FAERS Safety Report 6508001-4 (Version None)
Quarter: 2009Q4

REPORT INFORMATION
  Report Type: 
  Country: None (occurrence: None)
  Receive Date: 20091208
  Receipt Date: 20090320
  Transmission Date: 20100525
  Serious: Yes (Hospitalization)
  Sender: FDA-Public Use
  Company Number: CIP08002617

PATIENT
  Age: 39 Year
  Sex: Male

DRUGS (7)
  1. DIDRONEL [Suspect]
     Indication: EXTRASKELETAL OSSIFICATION
     Dosage: 1800 MG DAILY, ORAL
     Route: 048
     Dates: start: 20080201, end: 20080401
  2. BACLOFEN [Concomitant]
  3. DOCUSATE (DOCUSATE) [Concomitant]
  4. OXYCODONE HCL [Concomitant]
  5. VESICARE /01735901/ (SOLIFENACIN) [Concomitant]
  6. SENNA /00142201/ (SENNA ALEXANDRINA) [Concomitant]
  7. DILANTIN /00017401/ (PHENYTOIN) [Concomitant]

REACTIONS (1)
  - FEMUR FRACTURE [None]
